FAERS Safety Report 12964782 (Version 1)
Quarter: 2016Q4

REPORT INFORMATION
  Report Type: Spontaneous
  Country: ES (occurrence: ES)
  Receive Date: 20161122
  Receipt Date: 20161122
  Transmission Date: 20170207
  Serious: Yes (Other)
  Sender: FDA-Public Use
  Company Number: ES-PFIZER INC-2016536462

PATIENT
  Age: 54 Year
  Sex: Female

DRUGS (4)
  1. SOMAVERT [Suspect]
     Active Substance: PEGVISOMANT
     Indication: ACROMEGALY
     Dosage: UNK, WEEKLY
     Route: 058
     Dates: start: 200609
  2. AFINITOR [Suspect]
     Active Substance: EVEROLIMUS
     Indication: NEOPLASM MALIGNANT
     Dosage: 10 MG, 1X/DAY
  3. EUTIROX [Concomitant]
     Active Substance: LEVOTHYROXINE SODIUM
     Indication: THYROID DISORDER
     Dosage: 125 1X/DAY
  4. SOMATULINE AUTOGEL [Concomitant]
     Active Substance: LANREOTIDE ACETATE
     Indication: ACROMEGALY
     Dosage: ONE INJECTION OF 120 MG EVERY 28

REACTIONS (7)
  - Transaminases increased [Unknown]
  - Product use issue [Unknown]
  - Rheumatoid arthritis [Unknown]
  - Neoplasm progression [Not Recovered/Not Resolved]
  - Blood cholesterol increased [Not Recovered/Not Resolved]
  - Blood glucose increased [Not Recovered/Not Resolved]
  - Ocular neoplasm [Not Recovered/Not Resolved]
